FAERS Safety Report 5143742-5 (Version None)
Quarter: 2006Q4

REPORT INFORMATION
  Report Type: 
  Country: None (occurrence: None)
  Receive Date: 20061106
  Receipt Date: 20061024
  Transmission Date: 20070319
  Serious: Yes (Other)
  Sender: FDA-Public Use
  Company Number: NO-BAYER-200614981GDS

PATIENT
  Age: 46 Year
  Sex: Male

DRUGS (2)
  1. ASPIRIN [Suspect]
     Indication: THROMBOSIS PROPHYLAXIS
  2. DIPYRIDAMOLE [Suspect]
     Indication: THROMBOSIS PROPHYLAXIS

REACTIONS (15)
  - ACTIVATED PARTIAL THROMBOPLASTIN TIME PROLONGED [None]
  - AMNESIA [None]
  - ANTIBODY TEST POSITIVE [None]
  - ANTIPHOSPHOLIPID SYNDROME [None]
  - BLOOD FIBRINOGEN INCREASED [None]
  - CEREBROVASCULAR ACCIDENT [None]
  - DISTURBANCE IN ATTENTION [None]
  - DYSARTHRIA [None]
  - HEMIANOPIA [None]
  - LABORATORY TEST ABNORMAL [None]
  - MITRAL VALVE INCOMPETENCE [None]
  - MITRAL VALVE SCLEROSIS [None]
  - PROTEIN TOTAL DECREASED [None]
  - RETINAL ARTERY THROMBOSIS [None]
  - SENSORY DISTURBANCE [None]
